FAERS Safety Report 11792600 (Version 1)
Quarter: 2015Q4

REPORT INFORMATION
  Report Type: Spontaneous
  Country: US (occurrence: US)
  Receive Date: 20151202
  Receipt Date: 20151202
  Transmission Date: 20160305
  Serious: Yes (Hospitalization)
  Sender: FDA-Public Use
  Company Number: US-IPCA LABORATORIES LIMITED-IPC201511-000794

PATIENT
  Age: 84 Year
  Sex: Male

DRUGS (14)
  1. ALLOPURINOL. [Concomitant]
     Active Substance: ALLOPURINOL
  2. ASPIRIN. [Concomitant]
     Active Substance: ASPIRIN
  3. CITALOPRAM [Concomitant]
     Active Substance: CITALOPRAM HYDROBROMIDE
  4. FUROSEMIDE. [Concomitant]
     Active Substance: FUROSEMIDE
  5. MIRTAZAPINE. [Concomitant]
     Active Substance: MIRTAZAPINE
  6. DILTIAZEM [Concomitant]
     Active Substance: DILTIAZEM
  7. METOPROLOL XL [Concomitant]
     Active Substance: METOPROLOL
  8. LOVASTATIN. [Concomitant]
     Active Substance: LOVASTATIN
  9. WARFARIN [Suspect]
     Active Substance: WARFARIN
  10. TAMSULOSIN [Concomitant]
     Active Substance: TAMSULOSIN
  11. BOSUTINIB [Suspect]
     Active Substance: BOSUTINIB
     Indication: CHRONIC LYMPHOCYTIC LEUKAEMIA
  12. DIGOXIN. [Concomitant]
     Active Substance: DIGOXIN
  13. OXYCODONE [Concomitant]
     Active Substance: OXYCODONE
  14. POLYETHYLENE GLYCOL [Concomitant]
     Active Substance: POLYETHYLENE GLYCOLS

REACTIONS (3)
  - Drug interaction [Unknown]
  - International normalised ratio increased [Recovering/Resolving]
  - Pulmonary haemorrhage [Recovering/Resolving]
